FAERS Safety Report 9305499 (Version 1)
Quarter: 2013Q2

REPORT INFORMATION
  Report Type: Spontaneous
  Country: US (occurrence: None)
  Receive Date: 20130522
  Receipt Date: 20130522
  Transmission Date: 20140414
  Serious: No
  Sender: FDA-Public Use
  Company Number: None

PATIENT
  Age: 65 Year
  Sex: Female
  Weight: 80.3 kg

DRUGS (1)
  1. TRASTUZUMAB (HERCEPTIN) [Suspect]
     Dates: start: 20090212

REACTIONS (2)
  - Pneumonia [None]
  - Ejection fraction decreased [None]
